FAERS Safety Report 12896691 (Version 1)
Quarter: 2016Q4

REPORT INFORMATION
  Report Type: Spontaneous
  Country: JP (occurrence: JP)
  Receive Date: 20161031
  Receipt Date: 20161031
  Transmission Date: 20170207
  Serious: Yes (Other)
  Sender: FDA-Public Use
  Company Number: JP-GLAXOSMITHKLINE-JP2016JPN156802

PATIENT
  Age: 5 Decade
  Sex: Male

DRUGS (3)
  1. HEPSERA [Suspect]
     Active Substance: ADEFOVIR DIPIVOXIL
     Indication: CHRONIC HEPATITIS B
     Dosage: UNK
     Route: 048
     Dates: start: 20130213, end: 20151105
  2. ENTECAVIR HYDRATE [Concomitant]
     Indication: CHRONIC HEPATITIS B
     Dosage: UNK
     Dates: start: 20110329
  3. ZEFIX [Suspect]
     Active Substance: LAMIVUDINE
     Indication: CHRONIC HEPATITIS B
     Dosage: UNK
     Route: 048
     Dates: start: 20011220

REACTIONS (4)
  - Osteonecrosis [Unknown]
  - Hypophosphataemia [Recovered/Resolved]
  - Tendonitis [Unknown]
  - Gait disturbance [Recovering/Resolving]

NARRATIVE: CASE EVENT DATE: 2014
